FAERS Safety Report 7596984-3 (Version None)
Quarter: 2011Q3

REPORT INFORMATION
  Report Type: 
  Country: None (occurrence: None)
  Receive Date: 20110708
  Receipt Date: 20110627
  Transmission Date: 20111222
  Serious: Yes (Death, Hospitalization)
  Sender: FDA-Public Use
  Company Number: JP-BRISTOL-MYERS SQUIBB COMPANY-15856800

PATIENT
  Age: 64 Year
  Sex: Female

DRUGS (8)
  1. CISPLATIN [Suspect]
     Indication: NON-SMALL CELL LUNG CANCER
  2. IRINOTECAN HCL [Suspect]
     Indication: NON-SMALL CELL LUNG CANCER
  3. GEMCITABINE [Suspect]
     Indication: NON-SMALL CELL LUNG CANCER
  4. CARBOPLATIN [Suspect]
     Indication: NON-SMALL CELL LUNG CANCER
  5. PACLITAXEL [Suspect]
     Indication: NON-SMALL CELL LUNG CANCER
  6. DOCETAXEL [Suspect]
     Indication: NON-SMALL CELL LUNG CANCER
     Dates: start: 20090101
  7. VINORELBINE [Suspect]
     Indication: NON-SMALL CELL LUNG CANCER
  8. GEFITINIB [Suspect]
     Indication: NON-SMALL CELL LUNG CANCER

REACTIONS (3)
  - PNEUMONITIS [None]
  - NEOPLASM MALIGNANT [None]
  - ACUTE MYELOID LEUKAEMIA [None]
